FAERS Safety Report 22150738 (Version 4)
Quarter: 2023Q4

REPORT INFORMATION
  Report Type: Report from Study
  Country: US (occurrence: US)
  Receive Date: 20230329
  Receipt Date: 20231222
  Transmission Date: 20240109
  Serious: Yes (Other)
  Sender: FDA-Public Use
  Company Number: US-002147023-NVSC2023US066788

PATIENT
  Sex: Female

DRUGS (1)
  1. COSENTYX [Suspect]
     Active Substance: SECUKINUMAB
     Indication: Psoriatic arthropathy
     Dosage: 150 MG, QW (FOR 5 WEEKS, THEN EVERY 4 WEEKS))
     Route: 058
     Dates: start: 20230319

REACTIONS (8)
  - Psoriatic arthropathy [Unknown]
  - Gait disturbance [Unknown]
  - Pain in extremity [Unknown]
  - Rheumatoid arthritis [Unknown]
  - Fatigue [Unknown]
  - Exostosis [Unknown]
  - Poor quality sleep [Recovering/Resolving]
  - Drug ineffective [Unknown]
